FAERS Safety Report 13846350 (Version 3)
Quarter: 2017Q4

REPORT INFORMATION
  Report Type: Spontaneous
  Country: CA (occurrence: CA)
  Receive Date: 20170808
  Receipt Date: 20171211
  Transmission Date: 20180320
  Serious: Yes (Hospitalization, Other)
  Sender: FDA-Public Use
  Company Number: CA-HIKMA PHARMACEUTICALS CO. LTD-2017CA008107

PATIENT

DRUGS (7)
  1. INFLECTRA [Suspect]
     Active Substance: INFLIXIMAB-DYYB
     Dosage: 730 MG,  EVERY ,6 WEEKS (10MG/KG)
     Route: 042
  2. INFLECTRA [Suspect]
     Active Substance: INFLIXIMAB-DYYB
     Dosage: 700 MG, THEN EVERY 6 WEEKS
     Route: 042
  3. INFLECTRA [Suspect]
     Active Substance: INFLIXIMAB-DYYB
     Dosage: 400 MG EVERY 6 WEEKS;
     Route: 042
  4. IMURAN [Concomitant]
     Active Substance: AZATHIOPRINE
     Dosage: 125 MG, DAILY
     Route: 048
     Dates: start: 20170405
  5. INFLECTRA [Suspect]
     Active Substance: INFLIXIMAB-DYYB
     Indication: COLITIS ULCERATIVE
     Dosage: 400 MG, CYCLIC EVERY 0,2,6 WEEKS, THEN EVERY 8 WEEKS
     Route: 042
     Dates: start: 20170511
  6. PREDNISONE. [Concomitant]
     Active Substance: PREDNISONE
     Dosage: 40 MG, UNK
     Route: 065
     Dates: start: 20170111, end: 20170315
  7. PREDNISONE. [Concomitant]
     Active Substance: PREDNISONE
     Dosage: 40 MG, UNK
     Dates: start: 20170405, end: 201710

REACTIONS (10)
  - Malaise [Not Recovered/Not Resolved]
  - Drug effect incomplete [Unknown]
  - Off label use [Unknown]
  - Nasal congestion [Recovered/Resolved]
  - Fatigue [Unknown]
  - Rectal haemorrhage [Unknown]
  - Asthenia [Unknown]
  - Nasopharyngitis [Recovered/Resolved]
  - Headache [Unknown]
  - Balance disorder [Unknown]
